FAERS Safety Report 8666949 (Version 4)
Quarter: 2012Q4

REPORT INFORMATION
  Report Type: 
  Country: GB (occurrence: GB)
  Receive Date: 20120716
  Receipt Date: 20121017
  Transmission Date: 20130627
  Serious: Yes (Death, Other)
  Sender: FDA-Public Use
  Company Number: GB-ABBOTT-12P-167-0955687-00

PATIENT
  Age: 79 Year
  Sex: Female
  Weight: 55.4 kg

DRUGS (28)
  1. KLARICID TABLETS [Suspect]
     Indication: PNEUMONIA
     Route: 048
     Dates: start: 20120512, end: 20120521
  2. AMOXICILLIN [Suspect]
     Indication: PRODUCT USED FOR UNKNOWN INDICATION
  3. SIMVASTATIN [Suspect]
     Indication: PRODUCT USED FOR UNKNOWN INDICATION
     Route: 048
  4. SPIRONOLACTONE [Suspect]
     Indication: PRODUCT USED FOR UNKNOWN INDICATION
  5. BUMETANIDE [Suspect]
     Indication: PRODUCT USED FOR UNKNOWN INDICATION
  6. AMIODARONE [Suspect]
     Indication: PRODUCT USED FOR UNKNOWN INDICATION
  7. METHOTREXATE [Suspect]
     Indication: PRODUCT USED FOR UNKNOWN INDICATION
  8. TEICOPLANIN [Concomitant]
     Indication: PNEUMONIA
  9. GENTAMICIN [Concomitant]
     Indication: PRODUCT USED FOR UNKNOWN INDICATION
  10. OMEPRAZOLE [Concomitant]
     Indication: PRODUCT USED FOR UNKNOWN INDICATION
  11. ADENOSINE [Concomitant]
     Indication: PRODUCT USED FOR UNKNOWN INDICATION
  12. FUROSEMIDE [Concomitant]
     Indication: PRODUCT USED FOR UNKNOWN INDICATION
  13. DALTEPARIN SODIUM [Concomitant]
     Indication: PRODUCT USED FOR UNKNOWN INDICATION
  14. CANDESARTAN [Concomitant]
     Indication: PRODUCT USED FOR UNKNOWN INDICATION
  15. AMOXICILLIN\CLAVULANATE POTASSIUM [Concomitant]
     Indication: PRODUCT USED FOR UNKNOWN INDICATION
  16. PARACETAMOL [Concomitant]
     Indication: PRODUCT USED FOR UNKNOWN INDICATION
  17. BISOPROLOL [Concomitant]
     Indication: PRODUCT USED FOR UNKNOWN INDICATION
  18. BISOPROLOL [Concomitant]
  19. HEPARIN [Concomitant]
     Indication: PULMONARY EMBOLISM
  20. CLOTRIMAZOLE [Concomitant]
     Indication: PRODUCT USED FOR UNKNOWN INDICATION
  21. FORTISIP [Concomitant]
     Indication: PRODUCT USED FOR UNKNOWN INDICATION
  22. METOCLOPRAMIDE [Concomitant]
     Indication: PRODUCT USED FOR UNKNOWN INDICATION
  23. FOLIC ACID [Concomitant]
     Indication: PRODUCT USED FOR UNKNOWN INDICATION
  24. ADCAL-D3 [Concomitant]
     Indication: PRODUCT USED FOR UNKNOWN INDICATION
  25. TRAMADOL [Concomitant]
     Indication: PRODUCT USED FOR UNKNOWN INDICATION
  26. CO-CODAMOL [Concomitant]
     Indication: PRODUCT USED FOR UNKNOWN INDICATION
  27. DIORALYTE [Concomitant]
     Indication: PRODUCT USED FOR UNKNOWN INDICATION
  28. DICLOFENAC DIETHYLAMMONIUM SALT [Concomitant]
     Indication: PRODUCT USED FOR UNKNOWN INDICATION

REACTIONS (36)
  - Stevens-Johnson syndrome [Fatal]
  - Toxic epidermal necrolysis [Fatal]
  - Pruritus [Unknown]
  - Erythema [Unknown]
  - Oedema peripheral [Unknown]
  - Rash pruritic [Unknown]
  - Skin swelling [Unknown]
  - Skin tightness [Unknown]
  - Rash maculo-papular [Unknown]
  - Dry skin [Unknown]
  - Hypersensitivity [Unknown]
  - Adverse drug reaction [Unknown]
  - Rash generalised [Unknown]
  - Pain [Unknown]
  - Atrial fibrillation [Unknown]
  - Fluid overload [Unknown]
  - Petechiae [Unknown]
  - Eczema [Unknown]
  - Exfoliative rash [Unknown]
  - Blister [Unknown]
  - Scab [Unknown]
  - Renal failure acute [Unknown]
  - Blood creatinine increased [Unknown]
  - Haemoglobin decreased [Unknown]
  - Skin irritation [Unknown]
  - Rash [Unknown]
  - Pulmonary fibrosis [Unknown]
  - Pulmonary embolism [Unknown]
  - Staphylococcal scalded skin syndrome [Unknown]
  - Blister [Unknown]
  - Skin erosion [Unknown]
  - Mucosal erosion [Unknown]
  - Skin exfoliation [Unknown]
  - Vasculitis [Unknown]
  - Erythema [Unknown]
  - Diarrhoea [Unknown]
